FAERS Safety Report 10779475 (Version 1)
Quarter: 2015Q1

REPORT INFORMATION
  Report Type: Spontaneous
  Country: JP (occurrence: JP)
  Receive Date: 20150210
  Receipt Date: 20150210
  Transmission Date: 20150721
  Serious: Yes (Hospitalization)
  Sender: FDA-Public Use
  Company Number: JP-EISAI MEDICAL RESEARCH-EC-2015-003788

PATIENT
  Age: 41 Year
  Sex: Female

DRUGS (1)
  1. RABEFINE [Suspect]
     Active Substance: RABEPRAZOLE
     Indication: HELICOBACTER INFECTION
     Route: 048
     Dates: start: 20150124, end: 20150128

REACTIONS (2)
  - Enterocolitis haemorrhagic [Unknown]
  - Melaena [Unknown]

NARRATIVE: CASE EVENT DATE: 20150128
